FAERS Safety Report 26064688 (Version 2)
Quarter: 2025Q4

REPORT INFORMATION
  Report Type: Spontaneous
  Country: CA (occurrence: CA)
  Receive Date: 20251119
  Receipt Date: 20251130
  Transmission Date: 20260117
  Serious: Yes (Other)
  Sender: BRACCO
  Company Number: CA-BRACCO-2025CA08023

PATIENT
  Age: 70 Year
  Sex: Male
  Weight: 98 kg

DRUGS (1)
  1. MULTIHANCE [Suspect]
     Active Substance: GADOBENATE DIMEGLUMINE
     Indication: Magnetic resonance imaging
     Dosage: UNK UNK, SINGLE
     Dates: start: 20251106, end: 20251106

REACTIONS (2)
  - Unresponsive to stimuli [Recovered/Resolved]
  - Malaise [Recovered/Resolved]

NARRATIVE: CASE EVENT DATE: 20251106
